FAERS Safety Report 21036965 (Version 6)
Quarter: 2023Q4

REPORT INFORMATION
  Report Type: Report from Study
  Country: IN (occurrence: None)
  Receive Date: 20220702
  Receipt Date: 20231018
  Transmission Date: 20240110
  Serious: Yes (Death, Hospitalization)
  Sender: FDA-Public Use
  Company Number: IN-ROCHE-3125038

PATIENT
  Age: 68 Year
  Sex: Female
  Weight: 91.1 kg

DRUGS (26)
  1. POLATUZUMAB VEDOTIN [Suspect]
     Active Substance: POLATUZUMAB VEDOTIN
     Indication: Diffuse large B-cell lymphoma recurrent
     Dosage: 20/MAY/2022, MOST RECENT DOSE PRIOR TO AE AND SAE (169 MG)
     Route: 042
     Dates: start: 20220408
  2. RITUXIMAB [Suspect]
     Active Substance: RITUXIMAB
     Indication: Diffuse large B-cell lymphoma recurrent
     Dosage: 20/MAY/2022, MOST RECENT DOSE PRIOR TO AE AND SAE (733 MG)
     Route: 041
     Dates: start: 20220407
  3. GEMCITABINE [Suspect]
     Active Substance: GEMCITABINE
     Indication: Diffuse large B-cell lymphoma recurrent
     Dosage: 21/MAY/2022, MOST RECENT DOSE PRIOR TO AE AND SAE (2060 MG)
     Route: 042
     Dates: start: 20220408
  4. OXALIPLATIN [Suspect]
     Active Substance: OXALIPLATIN
     Indication: Diffuse large B-cell lymphoma recurrent
     Dosage: 21/MAY/2022, MOST RECENT DOSE PRIOR TO AE AND SAE (206 MG)
     Route: 042
     Dates: start: 20220408
  5. TELMISARTAN [Concomitant]
     Active Substance: TELMISARTAN
     Indication: Hypertension
     Route: 048
  6. MAGNEX INJECTION [Concomitant]
     Route: 042
     Dates: start: 20220602, end: 20220606
  7. LEVOFLOXACIN [Concomitant]
     Active Substance: LEVOFLOXACIN
     Route: 042
     Dates: start: 20220602, end: 20220603
  8. MEROPENEM [Concomitant]
     Active Substance: MEROPENEM
     Route: 042
     Dates: start: 20220603, end: 20220606
  9. HUMAN RED BLOOD CELL [Concomitant]
     Active Substance: HUMAN RED BLOOD CELL
     Indication: Anaemia
     Dosage: 3 UNIT
     Route: 042
     Dates: start: 20220603, end: 20220604
  10. RDP [Concomitant]
     Indication: Anaemia
     Dosage: 2 UNIT
     Route: 042
     Dates: start: 20220603, end: 20220603
  11. TAXIM O [Concomitant]
     Route: 048
     Dates: start: 20220608, end: 20220609
  12. MAGNESIUM [Concomitant]
     Active Substance: MAGNESIUM
     Indication: Renal impairment
     Route: 042
     Dates: start: 20220602, end: 20220606
  13. LASIX [Concomitant]
     Active Substance: FUROSEMIDE
     Indication: Renal impairment
     Route: 042
     Dates: start: 20220603, end: 20220606
  14. PHENIRAMINE [Concomitant]
     Active Substance: PHENIRAMINE
     Dosage: 1 AMPULE
     Route: 042
     Dates: start: 20220520, end: 20220520
  15. PHENIRAMINE [Concomitant]
     Active Substance: PHENIRAMINE
     Dosage: 1 AMPULE
     Route: 042
     Dates: start: 20220428, end: 20220428
  16. A-HYDROCORT [Concomitant]
     Active Substance: HYDROCORTISONE SODIUM SUCCINATE
     Route: 042
     Dates: start: 20220428, end: 20220428
  17. A-HYDROCORT [Concomitant]
     Active Substance: HYDROCORTISONE SODIUM SUCCINATE
     Route: 042
     Dates: start: 20220520, end: 20220520
  18. A-HYDROCORT [Concomitant]
     Active Substance: HYDROCORTISONE SODIUM SUCCINATE
     Route: 042
     Dates: start: 20220407, end: 20220407
  19. ONDANSETRON HYDROCHLORIDE [Concomitant]
     Active Substance: ONDANSETRON HYDROCHLORIDE
     Route: 042
     Dates: start: 20220408, end: 20220408
  20. ONDANSETRON HYDROCHLORIDE [Concomitant]
     Active Substance: ONDANSETRON HYDROCHLORIDE
     Route: 042
     Dates: start: 20220429, end: 20220429
  21. ONDANSETRON HYDROCHLORIDE [Concomitant]
     Active Substance: ONDANSETRON HYDROCHLORIDE
     Route: 042
     Dates: start: 20220521, end: 20220521
  22. DEXA INJ [Concomitant]
     Route: 042
     Dates: start: 20220408, end: 20220408
  23. DEXA INJ [Concomitant]
     Route: 042
     Dates: start: 20220429, end: 20220429
  24. DEXA INJ [Concomitant]
     Route: 042
     Dates: start: 20220521, end: 20220521
  25. FILGRASTIM [Concomitant]
     Active Substance: FILGRASTIM
     Route: 058
     Dates: start: 20220409, end: 20220415
  26. FILGRASTIM [Concomitant]
     Active Substance: FILGRASTIM
     Route: 058
     Dates: start: 20220521, end: 20220527

REACTIONS (1)
  - Acute hepatic failure [Fatal]

NARRATIVE: CASE EVENT DATE: 20220608
